FAERS Safety Report 14363014 (Version 3)
Quarter: 2018Q2

REPORT INFORMATION
  Report Type: Spontaneous
  Country: DE (occurrence: DE)
  Receive Date: 20180108
  Receipt Date: 20180420
  Transmission Date: 20180711
  Serious: Yes (Death, Life-Threatening, Hospitalization, Other)
  Sender: FDA-Public Use
  Company Number: DE-BRISTOL-MYERS SQUIBB COMPANY-BMS-2017-096136

PATIENT
  Age: 61 Year
  Sex: Female
  Weight: 68 kg

DRUGS (5)
  1. NIVOLUMAB [Suspect]
     Active Substance: NIVOLUMAB
     Indication: ANGIOSARCOMA
     Dosage: 3 MG/KG, UNK
     Route: 042
     Dates: start: 20170920, end: 20171004
  2. LETROZOLE. [Concomitant]
     Active Substance: LETROZOLE
     Indication: PREMEDICATION
     Dosage: 1 DF, QD
     Route: 065
  3. JODETTEN [Concomitant]
     Indication: PREMEDICATION
     Dosage: 1530 MG, QWK
     Route: 065
  4. PREDNISOLONE. [Concomitant]
     Active Substance: PREDNISOLONE
     Indication: PREMEDICATION
     Dosage: 1 DF, QD
     Route: 065
  5. PANTOPRAZOLE [Concomitant]
     Active Substance: PANTOPRAZOLE
     Indication: PREMEDICATION
     Dosage: 1 DF, QD
     Route: 065

REACTIONS (8)
  - Immune thrombocytopenic purpura [Fatal]
  - Product use in unapproved indication [Unknown]
  - Vaginal haemorrhage [Recovered/Resolved]
  - Coombs positive haemolytic anaemia [Unknown]
  - Folate deficiency [Unknown]
  - Escherichia urinary tract infection [Unknown]
  - Bone marrow infiltration [Unknown]
  - Malignant neoplasm progression [Unknown]

NARRATIVE: CASE EVENT DATE: 20171016
